FAERS Safety Report 18467195 (Version 1)
Quarter: 2020Q4

REPORT INFORMATION
  Report Type: Spontaneous
  Country: US (occurrence: US)
  Receive Date: 20201104
  Receipt Date: 20201104
  Transmission Date: 20210114
  Serious: Yes (Hospitalization)
  Sender: FDA-Public Use
  Company Number: None

PATIENT
  Age: 51 Year
  Sex: Male
  Weight: 85 kg

DRUGS (1)
  1. ACETAMINOPHEN (ACETAMINOPHEN 500MG TAB) [Suspect]
     Active Substance: ACETAMINOPHEN
     Indication: PAIN
     Dates: start: 20200915, end: 20200915

REACTIONS (3)
  - Hyperkalaemia [None]
  - Palpitations [None]
  - Electrocardiogram abnormal [None]

NARRATIVE: CASE EVENT DATE: 20200915
